FAERS Safety Report 18058014 (Version 3)
Quarter: 2020Q3

REPORT INFORMATION
  Report Type: Spontaneous
  Country: CZ (occurrence: CZ)
  Receive Date: 20200723
  Receipt Date: 20200907
  Transmission Date: 20201103
  Serious: Yes (Hospitalization, Other)
  Sender: FDA-Public Use
  Company Number: CZ-AUROBINDO-AUR-APL-2020-035738

PATIENT
  Age: 67 Year
  Sex: Female
  Weight: 78 kg

DRUGS (17)
  1. ZOLPIDEM 10 MG FILM COATED TABLETS [Suspect]
     Active Substance: ZOLPIDEM TARTRATE
     Dosage: 30 MILLIGRAM
     Route: 065
  2. ZOLPIDEM 10 MG FILM COATED TABLETS [Suspect]
     Active Substance: ZOLPIDEM TARTRATE
     Dosage: 20 MILLIGRAM, ONCE A DAY,TWO TABLETS
     Route: 065
  3. METFORMIN [Concomitant]
     Active Substance: METFORMIN HYDROCHLORIDE
     Indication: TYPE 2 DIABETES MELLITUS
     Dosage: UNK,SHE MANAGED TO TAKE HER DIABETIC DIET AND MEDICATION REGULARLY
     Route: 065
  4. CAFFEINE. [Concomitant]
     Active Substance: CAFFEINE
     Indication: PAIN
     Dosage: UNK
     Route: 065
  5. ZOLPIDEM 10 MG FILM COATED TABLETS [Suspect]
     Active Substance: ZOLPIDEM TARTRATE
     Indication: INSOMNIA
     Dosage: 20 MILLIGRAM (INCREASED THE DOSE TO 20 MG)
     Route: 048
  6. ZOLPIDEM 10 MG FILM COATED TABLETS [Suspect]
     Active Substance: ZOLPIDEM TARTRATE
     Dosage: 5 MILLIGRAM
     Route: 065
  7. TRAZODONE [Concomitant]
     Active Substance: TRAZODONE HYDROCHLORIDE
     Indication: ANXIETY
  8. OXAZEPAM. [Concomitant]
     Active Substance: OXAZEPAM
     Indication: ANXIETY
     Dosage: UNK
     Route: 065
  9. INSULIN [Concomitant]
     Active Substance: INSULIN NOS
     Indication: TYPE 2 DIABETES MELLITUS
     Dosage: UNK,SHE MANAGED TO TAKE HER DIABETIC DIET AND MEDICATION REGULARLY
     Route: 065
  10. ZOLPIDEM 10 MG FILM COATED TABLETS [Suspect]
     Active Substance: ZOLPIDEM TARTRATE
     Indication: ANXIETY
     Dosage: (1 TABLET/DAY, AT THE END 3.5 TABLETS/DAY )10 MILLIGRAM
     Route: 048
  11. TRAZODONE [Concomitant]
     Active Substance: TRAZODONE HYDROCHLORIDE
     Indication: HYPOSOMNIA
  12. PARACETAMOL [Concomitant]
     Active Substance: ACETAMINOPHEN
     Indication: PAIN
     Dosage: UNK
     Route: 065
  13. ZOLPIDEM 10 MG FILM COATED TABLETS [Suspect]
     Active Substance: ZOLPIDEM TARTRATE
     Dosage: 10 MILLIGRAM
     Route: 065
  14. GUAIFENESIN. [Concomitant]
     Active Substance: GUAIFENESIN
     Indication: PAIN
     Dosage: UNK
     Route: 065
  15. ZOLPIDEM 10 MG FILM COATED TABLETS [Suspect]
     Active Substance: ZOLPIDEM TARTRATE
     Dosage: 3.5 DOSAGE FORM, ONCE A DAY,THREE TABLETS A NIGHT + HALF A ZOLPIDEM TABLET
     Route: 065
  16. TRAZODONE [Concomitant]
     Active Substance: TRAZODONE HYDROCHLORIDE
     Indication: DEPRESSION
     Dosage: 300 MILLIGRAM, ONCE A DAY
     Route: 065
  17. ZOLPIDEM 10 MG FILM COATED TABLETS [Suspect]
     Active Substance: ZOLPIDEM TARTRATE
     Dosage: UNK, INCREASED THE DOSE TO THREE TABLETS A NIGHT AND HALF A TABLET A DAY
     Route: 065

REACTIONS (10)
  - Depression [Recovered/Resolved]
  - Drug abuse [Unknown]
  - Intentional product misuse [Recovered/Resolved]
  - Fatigue [Recovered/Resolved]
  - Suicidal ideation [Recovered/Resolved]
  - Mental disorder [Recovered/Resolved]
  - Drug tolerance [Unknown]
  - Major depression [Recovered/Resolved]
  - Drug ineffective [Recovered/Resolved]
  - Overdose [Unknown]
